FAERS Safety Report 17677639 (Version 1)
Quarter: 2020Q2

REPORT INFORMATION
  Report Type: Spontaneous
  Country: PT (occurrence: PT)
  Receive Date: 20200416
  Receipt Date: 20200416
  Transmission Date: 20200714
  Serious: Yes (Other)
  Sender: FDA-Public Use
  Company Number: PT-CANTON LABORATORIES, LLC-2082930

PATIENT
  Age: 46 Year
  Sex: Female

DRUGS (1)
  1. NAPROSYN [Suspect]
     Active Substance: NAPROXEN
     Indication: MIGRAINE
     Route: 048

REACTIONS (2)
  - Tongue eruption [Recovered/Resolved]
  - Fixed eruption [Recovered/Resolved]
